FAERS Safety Report 8061435-1 (Version None)
Quarter: 2012Q1

REPORT INFORMATION
  Report Type: 
  Country: None (occurrence: None)
  Receive Date: 20120120
  Receipt Date: 20111027
  Transmission Date: 20120608
  Serious: No
  Sender: FDA-Public Use
  Company Number: US-ALLERGAN-1114172US

PATIENT
  Age: 80 Year
  Sex: Female
  Weight: 56.689 kg

DRUGS (1)
  1. RESTASIS [Suspect]
     Indication: DRY EYE
     Dosage: 2 GTT, QD
     Route: 047
     Dates: start: 20110608, end: 20110101

REACTIONS (1)
  - FOREIGN BODY SENSATION IN EYES [None]
